FAERS Safety Report 24896049 (Version 1)
Quarter: 2025Q1

REPORT INFORMATION
  Report Type: Spontaneous
  Country: US (occurrence: US)
  Receive Date: 20250128
  Receipt Date: 20250128
  Transmission Date: 20250408
  Serious: No
  Sender: NOVARTIS
  Company Number: US-002147023-NVSC2025US011440

PATIENT
  Sex: Male
  Weight: 83 kg

DRUGS (2)
  1. SCEMBLIX [Suspect]
     Active Substance: ASCIMINIB HYDROCHLORIDE
     Indication: Chronic myeloid leukaemia
     Dosage: 80 MG, QD
     Route: 048
     Dates: start: 202407
  2. SCEMBLIX [Suspect]
     Active Substance: ASCIMINIB HYDROCHLORIDE
     Indication: Philadelphia chromosome positive

REACTIONS (3)
  - Fatigue [Unknown]
  - Pain [Unknown]
  - Nausea [Unknown]
